FAERS Safety Report 10442603 (Version 2)
Quarter: 2014Q4

REPORT INFORMATION
  Report Type: Report from Study
  Country: CI (occurrence: CI)
  Receive Date: 20140909
  Receipt Date: 20141002
  Transmission Date: 20150528
  Serious: Yes (Other)
  Sender: FDA-Public Use
  Company Number: CI-GILEAD-2014-0114243

PATIENT
  Age: 39 Year
  Sex: Female

DRUGS (7)
  1. ECONAZOLE NITRATE. [Concomitant]
     Active Substance: ECONAZOLE NITRATE
     Dosage: UNK
     Dates: start: 20140519, end: 20140522
  2. STOCRIN [Suspect]
     Active Substance: EFAVIRENZ
     Indication: HIV INFECTION
     Dosage: 1 DF, UNK
     Route: 048
     Dates: start: 20100211
  3. COLPOSEPTINE [Concomitant]
     Dosage: UNK
     Dates: start: 20140707, end: 20140710
  4. UTEPLEX [Concomitant]
     Active Substance: URIDINE 5^-TRIPHOSPHATE SODIUM
     Dosage: UNK
     Dates: start: 20140707, end: 20140717
  5. FEFOL                              /00098901/ [Concomitant]
     Indication: ANAEMIA
     Dosage: UNK
     Dates: start: 20130211
  6. EMTRICITABINE/TENOFOVIR DISOPROXIL FUMARATE [Suspect]
     Active Substance: EMTRICITABINE\TENOFOVIR DISOPROXIL
     Indication: HIV INFECTION
     Dosage: 1 DF, UNK
     Route: 048
     Dates: start: 20100211
  7. FANSIDAR [Concomitant]
     Active Substance: PYRIMETHAMINE\SULFADOXINE
     Dosage: UNK
     Dates: start: 20140707, end: 20140707

REACTIONS (1)
  - Stillbirth [Recovered/Resolved]

NARRATIVE: CASE EVENT DATE: 20140711
